FAERS Safety Report 7733945-5 (Version None)
Quarter: 2011Q3

REPORT INFORMATION
  Report Type: 
  Country: None (occurrence: None)
  Receive Date: 20110907
  Receipt Date: 20101116
  Transmission Date: 20111222
  Serious: No
  Sender: FDA-Public Use
  Company Number: US-MUTUAL PHARMACEUTICAL COMPANY, INC.-2010P1002420

PATIENT
  Sex: Male
  Weight: 58.97 kg

DRUGS (1)
  1. SULFAMETHOXAZOLE AND TRIMETHOPRIM [Suspect]
     Indication: SINUSITIS
     Route: 048
     Dates: start: 20101006

REACTIONS (5)
  - URTICARIA [None]
  - ERYTHEMA [None]
  - FEELING HOT [None]
  - RASH [None]
  - PRURITUS [None]
